FAERS Safety Report 4305472-9 (Version None)
Quarter: 2004Q1

REPORT INFORMATION
  Report Type: 
  Country: None (occurrence: None)
  Receive Date: 20040223
  Receipt Date: 20031121
  Transmission Date: 20041129
  Serious: No
  Sender: FDA-Public Use
  Company Number: SU-2003-001943

PATIENT
  Sex: Female

DRUGS (1)
  1. BENICAR [Suspect]
     Indication: HYPERTENSION
     Dosage: MG UNK PO
     Route: 048
     Dates: start: 20030101

REACTIONS (2)
  - CHEST DISCOMFORT [None]
  - HYPOAESTHESIA [None]
